FAERS Safety Report 17174053 (Version 7)
Quarter: 2022Q4

REPORT INFORMATION
  Report Type: Spontaneous
  Country: US (occurrence: US)
  Receive Date: 20191219
  Receipt Date: 20221214
  Transmission Date: 20230113
  Serious: No
  Sender: FDA-Public Use
  Company Number: US-PFIZER INC-2019542449

PATIENT
  Age: 77 Year
  Sex: Female
  Weight: 54.43 kg

DRUGS (2)
  1. ARTHROTEC [Suspect]
     Active Substance: DICLOFENAC SODIUM\MISOPROSTOL
     Indication: Arthritis
     Dosage: 2 DF, DAILY (50/200 MCG TABLET BY MOUTH, 2 TABLETS A DAY)
     Route: 048
  2. ARTHROTEC [Suspect]
     Active Substance: DICLOFENAC SODIUM\MISOPROSTOL
     Dosage: 1 DF, DAILY

REACTIONS (3)
  - Intentional product misuse [Unknown]
  - Product prescribing error [Unknown]
  - Arthritis [Unknown]
